FAERS Safety Report 18838128 (Version 2)
Quarter: 2022Q1

REPORT INFORMATION
  Report Type: Spontaneous
  Country: US (occurrence: US)
  Receive Date: 20210203
  Receipt Date: 20220127
  Transmission Date: 20220423
  Serious: No
  Sender: FDA-Public Use
  Company Number: US-ALLERGAN-2047563US

PATIENT
  Sex: Male
  Weight: 78.005 kg

DRUGS (5)
  1. BOTOX [Suspect]
     Active Substance: ONABOTULINUMTOXINA
     Indication: Foot deformity
     Dosage: 50 UNITS, SINGLE
     Dates: start: 20201124, end: 20201124
  2. BOTOX [Suspect]
     Active Substance: ONABOTULINUMTOXINA
     Indication: Toe walking
     Dosage: 50 UNITS, SINGLE
     Dates: start: 20201124, end: 20201124
  3. BOTOX [Suspect]
     Active Substance: ONABOTULINUMTOXINA
     Indication: Foot deformity
     Dosage: 50 UNITS, SINGLE
     Dates: start: 20201124, end: 20201124
  4. BOTOX [Suspect]
     Active Substance: ONABOTULINUMTOXINA
     Dosage: 50 UNITS, SINGLE
     Dates: start: 20201124, end: 20201124
  5. BOTOX [Suspect]
     Active Substance: ONABOTULINUMTOXINA
     Dosage: 100 UNITS, SINGLE
     Dates: start: 20201112, end: 20201112

REACTIONS (1)
  - Off label use [Unknown]
